FAERS Safety Report 18666508 (Version 2)
Quarter: 2021Q1

REPORT INFORMATION
  Report Type: Spontaneous
  Country: JP (occurrence: JP)
  Receive Date: 20201227
  Receipt Date: 20210102
  Transmission Date: 20210419
  Serious: No
  Sender: FDA-Public Use
  Company Number: NVSJ2020JP014052

PATIENT
  Sex: Male

DRUGS (2)
  1. ENERZAIR [Suspect]
     Active Substance: GLYCOPYRROLATE\INDACATEROL\MOMETASONE FUROATE
     Indication: ASTHMA
     Dosage: 1DF: INDACATEROL ACETATE150UG, GLYCOPYRRONIUM BROMIDE50UG, MOMETASONE FUROATE160UG
     Route: 055
  2. ENERZAIR [Suspect]
     Active Substance: GLYCOPYRROLATE\INDACATEROL\MOMETASONE FUROATE
     Dosage: 1DF: INDACATEROL ACETATE150UG, GLYCOPYRRONIUM BROMIDE50UG, MOMETASONE FUROATE160UG
     Route: 055

REACTIONS (1)
  - Micturition disorder [Recovered/Resolved]
